FAERS Safety Report 8458601-X (Version None)
Quarter: 2012Q2

REPORT INFORMATION
  Report Type: 
  Country: None (occurrence: None)
  Receive Date: 20120622
  Receipt Date: 20120614
  Transmission Date: 20120825
  Serious: Yes (Other)
  Sender: FDA-Public Use
  Company Number: US-JNJFOC-20120609344

PATIENT
  Sex: Female

DRUGS (2)
  1. ROGAINE (FOR WOMEN) [Suspect]
     Indication: HAIR GROWTH ABNORMAL
     Route: 065
  2. ROGAINE (FOR WOMEN) [Suspect]
     Route: 065

REACTIONS (1)
  - BREAST CANCER [None]
